FAERS Safety Report 8820868 (Version 4)
Quarter: 2014Q2

REPORT INFORMATION
  Report Type: Report from Study
  Country: DE (occurrence: DE)
  Receive Date: 20121002
  Receipt Date: 20140603
  Transmission Date: 20141212
  Serious: Yes (Life-Threatening, Hospitalization)
  Sender: FDA-Public Use
  Company Number: DE-ROCHE-1139118

PATIENT
  Age: 42 Year
  Sex: Male
  Weight: 69.5 kg

DRUGS (9)
  1. METHOXY POLYETHYLENE GLYCOL-EPOETIN BETA [Suspect]
     Indication: RENAL FAILURE CHRONIC
     Route: 042
     Dates: start: 20111201, end: 20120710
  2. PANTOZOL (GERMANY) [Concomitant]
     Route: 065
  3. DELIX (GERMANY) [Concomitant]
     Route: 065
  4. URSOFALK [Concomitant]
     Route: 065
  5. SIMETHICONE [Concomitant]
     Dosage: 30GTT
     Route: 065
  6. SPIRIVA [Concomitant]
     Route: 065
  7. FORADIL [Concomitant]
     Route: 065
  8. CONCOR [Concomitant]
     Route: 065
  9. PIPERACILLIN [Concomitant]
     Route: 065
     Dates: start: 20120208, end: 20120308

REACTIONS (4)
  - Cardiac pacemaker insertion [Recovered/Resolved]
  - Heart valve replacement [Recovered/Resolved]
  - Atrioventricular block [Recovered/Resolved with Sequelae]
  - Atrial fibrillation [Recovered/Resolved with Sequelae]
